FAERS Safety Report 22072154 (Version 1)
Quarter: 2023Q1

REPORT INFORMATION
  Report Type: Spontaneous
  Country: GB (occurrence: GB)
  Receive Date: 20230308
  Receipt Date: 20230308
  Transmission Date: 20230418
  Serious: Yes (Hospitalization)
  Sender: FDA-Public Use
  Company Number: GB-MHRA-MED-202302220919487770-DLQMV

PATIENT
  Age: 72 Year

DRUGS (1)
  1. CIPROFLOXACIN [Suspect]
     Active Substance: CIPROFLOXACIN
     Indication: Urinary tract infection
     Dates: start: 20221220, end: 20221230

REACTIONS (7)
  - Pain in jaw [Recovered/Resolved]
  - Pain in extremity [Recovered/Resolved]
  - Tendon pain [Recovered/Resolved]
  - Tendon pain [Recovered/Resolved]
  - Arthralgia [Recovered/Resolved]
  - Cough [Recovering/Resolving]
  - Arthralgia [Recovered/Resolved]
